FAERS Safety Report 11803410 (Version 1)
Quarter: 2015Q4

REPORT INFORMATION
  Report Type: Spontaneous
  Country: IT (occurrence: IT)
  Receive Date: 20151204
  Receipt Date: 20151204
  Transmission Date: 20160305
  Serious: Yes (Other)
  Sender: FDA-Public Use
  Company Number: IT-GILEAD-2015-0184190

PATIENT
  Age: 44 Year
  Sex: Male

DRUGS (4)
  1. KANRENOL [Concomitant]
     Active Substance: CANRENOATE POTASSIUM
  2. LACTULOSE. [Concomitant]
     Active Substance: LACTULOSE
  3. HARVONI [Suspect]
     Active Substance: LEDIPASVIR\SOFOSBUVIR
     Indication: HEPATITIS C
     Dosage: 1 DF, QD
     Route: 048
     Dates: start: 20151027, end: 20151109
  4. LASIX [Concomitant]
     Active Substance: FUROSEMIDE

REACTIONS (1)
  - Portal vein thrombosis [Unknown]

NARRATIVE: CASE EVENT DATE: 20151109
